FAERS Safety Report 10390428 (Version 2)
Quarter: 2015Q1

REPORT INFORMATION
  Report Type: Spontaneous
  Country: IT (occurrence: IT)
  Receive Date: 20140818
  Receipt Date: 20150120
  Transmission Date: 20150720
  Serious: Yes (Other)
  Sender: FDA-Public Use
  Company Number: IT-B.I. PHARMACEUTICALS,INC./RIDGEFIELD-2014-BI-37479IT

PATIENT
  Age: 69 Year
  Sex: Male
  Weight: 85 kg

DRUGS (4)
  1. PRADAXA [Suspect]
     Active Substance: DABIGATRAN ETEXILATE MESYLATE
     Indication: ARRHYTHMIA PROPHYLAXIS
     Route: 048
     Dates: start: 20131129, end: 20140721
  2. FLECANAIDE ACETATE [Concomitant]
     Indication: ARRHYTHMIA
     Route: 048
     Dates: start: 20120101, end: 20140811
  3. CARVEDILOL. [Concomitant]
     Active Substance: CARVEDILOL
     Indication: ARRHYTHMIA
     Route: 048
  4. TAPAZOLE [Suspect]
     Active Substance: METHIMAZOLE
     Indication: HYPERTHYROIDISM
     Route: 048
     Dates: start: 20120101, end: 20140811

REACTIONS (3)
  - Atrial fibrillation [Unknown]
  - Atrial flutter [Unknown]
  - Drug interaction [Unknown]

NARRATIVE: CASE EVENT DATE: 20140618
